FAERS Safety Report 6891680-X (Version None)
Quarter: 2010Q3

REPORT INFORMATION
  Report Type: 
  Country: None (occurrence: None)
  Receive Date: 20100731
  Receipt Date: 20070910
  Transmission Date: 20110219
  Serious: No
  Sender: FDA-Public Use
  Company Number: US-PFIZER INC-2007076266

PATIENT
  Sex: Female

DRUGS (2)
  1. CAMPTOSAR [Suspect]
     Indication: PRODUCT USED FOR UNKNOWN INDICATION
     Dosage: EVERY TWO WEEKS
  2. ATROPINE [Concomitant]
     Indication: PROPHYLAXIS AGAINST DIARRHOEA

REACTIONS (1)
  - VERTIGO [None]
